FAERS Safety Report 6266137-X (Version None)
Quarter: 2009Q3

REPORT INFORMATION
  Report Type: 
  Country: None (occurrence: None)
  Receive Date: 20090713
  Receipt Date: 20090708
  Transmission Date: 20100115
  Serious: Yes (Other)
  Sender: FDA-Public Use
  Company Number: US-ALLERGAN-0909633US

PATIENT
  Age: 60 Year
  Sex: Female

DRUGS (1)
  1. BOTOX [Suspect]
     Indication: HEMIPARESIS
     Dosage: UNK, SINGLE
     Route: 030
     Dates: start: 20090615, end: 20090615

REACTIONS (2)
  - ASTHENIA [None]
  - MUSCULAR WEAKNESS [None]
